FAERS Safety Report 13682144 (Version 1)
Quarter: 2017Q2

REPORT INFORMATION
  Report Type: Spontaneous
  Country: US (occurrence: US)
  Receive Date: 20170623
  Receipt Date: 20170623
  Transmission Date: 20170830
  Serious: No
  Sender: FDA-Public Use
  Company Number: US-BAUSCH-BL-2017-017179

PATIENT
  Sex: Female

DRUGS (1)
  1. JUBLIA [Suspect]
     Active Substance: EFINACONAZOLE
     Indication: ONYCHOMYCOSIS
     Dosage: APPLIED ON HER FINGERNAILS AND TOENAILS ONCE DAILY
     Route: 061
     Dates: start: 201612

REACTIONS (2)
  - Medication error [Unknown]
  - Drug dose omission [Unknown]
